FAERS Safety Report 12473743 (Version 1)
Quarter: 2016Q2

REPORT INFORMATION
  Report Type: Spontaneous
  Country: US (occurrence: US)
  Receive Date: 20160616
  Receipt Date: 20160616
  Transmission Date: 20160815
  Serious: Yes (Other)
  Sender: FDA-Public Use
  Company Number: US-MDT-ADR-2016-01112

PATIENT
  Age: 53 Year
  Sex: Female

DRUGS (12)
  1. MUPIROCIN. [Concomitant]
     Active Substance: MUPIROCIN
  2. MOVIPREP [Concomitant]
     Active Substance: ASCORBIC ACID\POLYETHYLENE GLYCOL 3350\POTASSIUM CHLORIDE\SODIUM ASCORBATE\SODIUM CHLORIDE\SODIUM SULFATE
  3. SULFAMETHOXAZOLE [Concomitant]
     Active Substance: SULFAMETHOXAZOLE
  4. AMOXILLIN [Concomitant]
     Active Substance: AMOXICILLIN
  5. CEPHALEXIN. [Concomitant]
     Active Substance: CEPHALEXIN
  6. ALENDRONATE SODIUM. [Concomitant]
     Active Substance: ALENDRONATE SODIUM
  7. AMPYRA [Suspect]
     Active Substance: DALFAMPRIDINE
     Dosage: Q 12 HRS
     Route: 048
  8. TECFIDERA [Suspect]
     Active Substance: DIMETHYL FUMARATE
     Dates: end: 201601
  9. DICYCLOMINE HCL [Concomitant]
     Active Substance: DICYCLOMINE HYDROCHLORIDE
  10. GABAPENTIN. [Concomitant]
     Active Substance: GABAPENTIN
  11. BACLOFEN. [Suspect]
     Active Substance: BACLOFEN
     Route: 037
  12. MYRBETRIQ [Concomitant]
     Active Substance: MIRABEGRON

REACTIONS (2)
  - Infusion site mass [Unknown]
  - Unevaluable event [Unknown]

NARRATIVE: CASE EVENT DATE: 201601
